FAERS Safety Report 25741000 (Version 2)
Quarter: 2025Q3

REPORT INFORMATION
  Report Type: Spontaneous
  Country: US (occurrence: US)
  Receive Date: 20250829
  Receipt Date: 20250904
  Transmission Date: 20251020
  Serious: Yes (Other)
  Sender: MYLAN
  Company Number: US-MYLANLABS-2025M1072993

PATIENT
  Age: 76 Year
  Sex: Female

DRUGS (12)
  1. CARDURA [Suspect]
     Active Substance: DOXAZOSIN MESYLATE
     Indication: Product used for unknown indication
  2. CARDURA [Suspect]
     Active Substance: DOXAZOSIN MESYLATE
     Route: 065
  3. CARDURA [Suspect]
     Active Substance: DOXAZOSIN MESYLATE
     Route: 065
  4. CARDURA [Suspect]
     Active Substance: DOXAZOSIN MESYLATE
  5. TAMSULOSIN [Suspect]
     Active Substance: TAMSULOSIN
     Indication: Product used for unknown indication
  6. TAMSULOSIN [Suspect]
     Active Substance: TAMSULOSIN
     Route: 065
  7. TAMSULOSIN [Suspect]
     Active Substance: TAMSULOSIN
     Route: 065
  8. TAMSULOSIN [Suspect]
     Active Substance: TAMSULOSIN
  9. ORENITRAM [Suspect]
     Active Substance: TREPROSTINIL
     Indication: Pulmonary arterial hypertension
     Dosage: 0.125 MILLIGRAM, TID (THREE TIMES A DAY)
     Dates: start: 20250612
  10. ORENITRAM [Suspect]
     Active Substance: TREPROSTINIL
     Dosage: 0.125 MILLIGRAM, TID (THREE TIMES A DAY)
     Route: 048
     Dates: start: 20250612
  11. ORENITRAM [Suspect]
     Active Substance: TREPROSTINIL
     Dosage: 0.125 MILLIGRAM, TID (THREE TIMES A DAY)
     Route: 048
     Dates: start: 20250612
  12. ORENITRAM [Suspect]
     Active Substance: TREPROSTINIL
     Dosage: 0.125 MILLIGRAM, TID (THREE TIMES A DAY)
     Dates: start: 20250612

REACTIONS (8)
  - Carotid arteriosclerosis [Unknown]
  - Blood pressure abnormal [Unknown]
  - Blood pressure decreased [Recovered/Resolved]
  - Dizziness [Recovered/Resolved]
  - Malaise [Unknown]
  - Fatigue [Unknown]
  - Peripheral swelling [Unknown]
  - Headache [Unknown]

NARRATIVE: CASE EVENT DATE: 20241201
